FAERS Safety Report 7972846-4 (Version None)
Quarter: 2011Q4

REPORT INFORMATION
  Report Type: 
  Country: None (occurrence: None)
  Receive Date: 20111213
  Receipt Date: 20111205
  Transmission Date: 20120403
  Serious: Yes (Hospitalization)
  Sender: FDA-Public Use
  Company Number: TR-US-EMD SERONO, INC.-7099966

PATIENT
  Sex: Male
  Weight: 51 kg

DRUGS (5)
  1. LIORESAL [Concomitant]
     Indication: MUSCLE SPASMS
     Route: 048
     Dates: start: 20060101
  2. KARBALEX [Concomitant]
     Indication: EPILEPSY
     Route: 048
     Dates: end: 20111001
  3. REBIF [Suspect]
     Indication: MULTIPLE SCLEROSIS
     Route: 058
     Dates: start: 20001101
  4. DETROL [Concomitant]
     Indication: URINARY INCONTINENCE
     Route: 048
     Dates: start: 20060101
  5. KEPPRA [Concomitant]
     Indication: EPILEPSY
     Route: 048
     Dates: start: 20111001

REACTIONS (3)
  - EPILEPSY [None]
  - TUBERCULOSIS [None]
  - JAUNDICE [None]
